FAERS Safety Report 7529780-3 (Version None)
Quarter: 2011Q2

REPORT INFORMATION
  Report Type: 
  Country: None (occurrence: None)
  Receive Date: 20110607
  Receipt Date: 20110530
  Transmission Date: 20111010
  Serious: Yes (Hospitalization)
  Sender: FDA-Public Use
  Company Number: CL-MEDIMMUNE-MEDI-0013254

PATIENT
  Sex: Female

DRUGS (1)
  1. SYNAGIS [Suspect]
     Route: 030
     Dates: start: 20110516, end: 20110516

REACTIONS (3)
  - APPARENT LIFE THREATENING EVENT [None]
  - APNOEA [None]
  - PNEUMONIA [None]
